FAERS Safety Report 7296718-6 (Version None)
Quarter: 2011Q1

REPORT INFORMATION
  Report Type: 
  Country: None (occurrence: None)
  Receive Date: 20110204
  Receipt Date: 20110125
  Transmission Date: 20110831
  Serious: Yes (Hospitalization)
  Sender: FDA-Public Use
  Company Number: TCI2011A00753

PATIENT
  Age: 73 Year
  Sex: Female

DRUGS (6)
  1. MAGNESIUM OXIDE [Concomitant]
  2. ROZEREM [Suspect]
     Indication: INSOMNIA
     Dosage: PER ORAL
     Route: 048
     Dates: start: 20110121, end: 20110121
  3. LIVALO (ITAVASTATIN CALCIUM) [Concomitant]
  4. OMEPRAZOLE [Concomitant]
  5. LOSARTAN POTASSIUM [Concomitant]
  6. ASPIRIN [Concomitant]

REACTIONS (3)
  - TREMOR [None]
  - SYNCOPE [None]
  - NAUSEA [None]
